FAERS Safety Report 10228803 (Version 1)
Quarter: 2014Q2

REPORT INFORMATION
  Report Type: Spontaneous
  Country: US (occurrence: US)
  Receive Date: 20140610
  Receipt Date: 20140610
  Transmission Date: 20141212
  Serious: Yes (Other)
  Sender: FDA-Public Use
  Company Number: US-UCBSA-117178

PATIENT
  Age: 33 Year
  Sex: Female

DRUGS (1)
  1. KEPPRA XR [Suspect]
     Indication: CONVULSION
     Dosage: 750 MG 4 TABLETS PER DAY, TOTAL DAILY DOSE: 3000 MG

REACTIONS (3)
  - Hallucination [Unknown]
  - Menstruation delayed [Unknown]
  - Convulsion [Unknown]
